FAERS Safety Report 12171760 (Version 1)
Quarter: 2016Q1

REPORT INFORMATION
  Report Type: Spontaneous
  Country: IN (occurrence: IN)
  Receive Date: 20160311
  Receipt Date: 20160311
  Transmission Date: 20160526
  Serious: Yes (Other)
  Sender: FDA-Public Use
  Company Number: PHHY2016IN030589

PATIENT
  Age: 37 Week
  Sex: Male
  Weight: 2.37 kg

DRUGS (2)
  1. WARFARIN [Suspect]
     Active Substance: WARFARIN
     Indication: FOETAL EXPOSURE DURING PREGNANCY
     Dosage: MATERNAL DOSE: 4 MG, QD,AT THE TIME OF CONCEPTION
     Route: 064
  2. WARFARIN [Suspect]
     Active Substance: WARFARIN
     Dosage: MATERNAL DOSE: 3 MG,FROM 8 WEEKS OF PREGNANCY
     Route: 064

REACTIONS (6)
  - Clonic convulsion [Unknown]
  - Dandy-Walker syndrome [Unknown]
  - Respiratory distress [Recovered/Resolved]
  - Foetal exposure during pregnancy [Unknown]
  - Foetal warfarin syndrome [Unknown]
  - Congenital nail disorder [Unknown]
